FAERS Safety Report 17676366 (Version 1)
Quarter: 2020Q2

REPORT INFORMATION
  Report Type: Spontaneous
  Country: US (occurrence: US)
  Receive Date: 20200416
  Receipt Date: 20200416
  Transmission Date: 20200714
  Serious: Yes (Other)
  Sender: FDA-Public Use
  Company Number: None

PATIENT
  Age: 18 Year
  Sex: Female
  Weight: 57.6 kg

DRUGS (1)
  1. METHYLPHENIDATE. [Suspect]
     Active Substance: METHYLPHENIDATE
     Indication: ATTENTION DEFICIT HYPERACTIVITY DISORDER
     Route: 048
     Dates: start: 20181009, end: 20181016

REACTIONS (6)
  - Gluten sensitivity [None]
  - Irritability [None]
  - Agitation [None]
  - Anxiety [None]
  - Affective disorder [None]
  - Depression [None]

NARRATIVE: CASE EVENT DATE: 20181009
